FAERS Safety Report 5400976-X (Version None)
Quarter: 2007Q3

REPORT INFORMATION
  Report Type: 
  Country: None (occurrence: None)
  Receive Date: 20070730
  Receipt Date: 20070724
  Transmission Date: 20080115
  Serious: Yes (Hospitalization, Other)
  Sender: FDA-Public Use
  Company Number: JP-MERCK-97072229

PATIENT
  Age: 21 Year
  Sex: Male
  Weight: 39 kg

DRUGS (6)
  1. PENTAMIDINE ISETHIONATE [Concomitant]
     Indication: PROPHYLAXIS
     Route: 065
     Dates: start: 19970128
  2. CRIXIVAN [Suspect]
     Indication: HIV INFECTION
     Route: 048
     Dates: start: 19970523, end: 19970603
  3. CRIXIVAN [Suspect]
     Route: 048
     Dates: start: 19970606, end: 19971014
  4. CRIXIVAN [Suspect]
     Route: 048
     Dates: start: 19970519, end: 19970522
  5. ZIDOVUDINE [Suspect]
     Indication: HIV INFECTION
     Route: 048
     Dates: start: 19970404, end: 19971014
  6. LAMIVUDINE [Suspect]
     Indication: HIV INFECTION
     Route: 048
     Dates: start: 19970404, end: 19971014

REACTIONS (4)
  - NEPHRITIS INTERSTITIAL [None]
  - NEPHROLITHIASIS [None]
  - PYREXIA [None]
  - RENAL ATROPHY [None]
